FAERS Safety Report 6648551-3 (Version None)
Quarter: 2010Q1

REPORT INFORMATION
  Report Type: 
  Country: None (occurrence: None)
  Receive Date: 20100319
  Receipt Date: 20100219
  Transmission Date: 20100710
  Serious: Yes (Death)
  Sender: FDA-Public Use
  Company Number: 2010AP000330

PATIENT
  Age: 49 Year
  Sex: Male

DRUGS (5)
  1. PAROXETINE HCL [Suspect]
     Indication: ANXIETY
     Dosage: 20 MG;QD ; 10 MG;QD ; 20 MG;QD ; 40 MG;QD
     Dates: start: 20001101, end: 20011001
  2. PAROXETINE HCL [Suspect]
     Indication: DEPRESSION
     Dosage: 20 MG;QD ; 10 MG;QD ; 20 MG;QD ; 40 MG;QD
     Dates: start: 20001101, end: 20011001
  3. PAROXETINE HCL [Suspect]
     Indication: ANXIETY
     Dosage: 20 MG;QD ; 10 MG;QD ; 20 MG;QD ; 40 MG;QD
     Dates: start: 20011001
  4. PAROXETINE HCL [Suspect]
     Indication: DEPRESSION
     Dosage: 20 MG;QD ; 10 MG;QD ; 20 MG;QD ; 40 MG;QD
     Dates: start: 20011001
  5. HYPNOTICS AND SEDATIVES (HYPNOTICS AND SEDATIVES) [Concomitant]

REACTIONS (7)
  - ANXIETY [None]
  - ASPHYXIA [None]
  - BACK PAIN [None]
  - COMPLETED SUICIDE [None]
  - CONDITION AGGRAVATED [None]
  - EPICONDYLITIS [None]
  - STRESS AT WORK [None]
